FAERS Safety Report 23061812 (Version 1)
Quarter: 2023Q4

REPORT INFORMATION
  Report Type: Report from Study
  Country: IN (occurrence: None)
  Receive Date: 20231013
  Receipt Date: 20231013
  Transmission Date: 20240109
  Serious: Yes (Other)
  Sender: FDA-Public Use
  Company Number: 2023A228791

PATIENT
  Sex: Female
  Weight: 68 kg

DRUGS (2)
  1. LYNPARZA [Suspect]
     Active Substance: OLAPARIB
     Indication: Breast cancer female
     Route: 048
  2. WOOD LIVE [Concomitant]
     Dosage: 300.0MG UNKNOWN

REACTIONS (1)
  - Full blood count decreased [Unknown]
